FAERS Safety Report 14107144 (Version 2)
Quarter: 2017Q4

REPORT INFORMATION
  Report Type: Spontaneous
  Country: ES (occurrence: ES)
  Receive Date: 20171019
  Receipt Date: 20171021
  Transmission Date: 20180321
  Serious: Yes (Other)
  Sender: FDA-Public Use
  Company Number: ES-NAPPMUNDI-GBR-2017-0049820

PATIENT
  Age: 55 Year
  Sex: Female
  Weight: 65 kg

DRUGS (8)
  1. OMEPRAZOL                          /00661201/ [Concomitant]
     Active Substance: OMEPRAZOLE
     Dosage: 1 DF, DAILY (1-0-0)
  2. MANIDON [Concomitant]
     Active Substance: VERAPAMIL HYDROCHLORIDE
     Dosage: 1 DF, TID (1-1-1)
  3. ABSTRAL [Concomitant]
     Active Substance: FENTANYL CITRATE
     Indication: BREAKTHROUGH PAIN
     Dosage: UNK
     Route: 048
     Dates: start: 20170921
  4. ESCITALOPRAM [Concomitant]
     Active Substance: ESCITALOPRAM OXALATE
     Dosage: 1 DF, DAILY (1-0-0)
  5. NOCTAMID [Concomitant]
     Active Substance: LORMETAZEPAM
     Dosage: 1 DF, DAILY (0-0-1)
  6. MOVICOL [Concomitant]
     Active Substance: POLYETHYLENE GLYCOL 3350\POTASSIUM CHLORIDE\SODIUM BICARBONATE\SODIUM CHLORIDE
  7. TARGIN [Suspect]
     Active Substance: NALOXONE HYDROCHLORIDE\OXYCODONE HYDROCHLORIDE
     Indication: PAIN MANAGEMENT
     Dosage: 80/40 DAILY
     Route: 048
     Dates: start: 20170921, end: 20170922
  8. MIRTAZAPINA [Concomitant]
     Active Substance: MIRTAZAPINE
     Dosage: 1 DF, DAILY (0-0-1)

REACTIONS (5)
  - Muscle contractions involuntary [Unknown]
  - Somnolence [Unknown]
  - Erythema [Unknown]
  - Confusional state [Unknown]
  - Aggression [Unknown]

NARRATIVE: CASE EVENT DATE: 20170921
